FAERS Safety Report 25977431 (Version 1)
Quarter: 2025Q4

REPORT INFORMATION
  Report Type: Spontaneous
  Country: RS (occurrence: RS)
  Receive Date: 20251030
  Receipt Date: 20251030
  Transmission Date: 20260118
  Serious: Yes (Death, Hospitalization, Other)
  Sender: IPCA
  Company Number: RS-IPCA LABORATORIES LIMITED-IPC-2025-RS-002871

PATIENT

DRUGS (1)
  1. ALLOPURINOL [Suspect]
     Active Substance: ALLOPURINOL
     Indication: Product used for unknown indication
     Dosage: UNK
     Route: 065

REACTIONS (5)
  - Toxic epidermal necrolysis [Fatal]
  - Sepsis [Fatal]
  - Renal failure [Fatal]
  - Renal impairment [Fatal]
  - Condition aggravated [Fatal]
